FAERS Safety Report 8047577-5 (Version None)
Quarter: 2012Q1

REPORT INFORMATION
  Report Type: 
  Country: None (occurrence: None)
  Receive Date: 20120116
  Receipt Date: 20120112
  Transmission Date: 20120608
  Serious: Yes (Other)
  Sender: FDA-Public Use
  Company Number: US-GLAXOSMITHKLINE-A0952192A

PATIENT
  Age: 22 Year
  Sex: Female

DRUGS (6)
  1. KEPPRA XR [Concomitant]
  2. CALCIUM [Concomitant]
  3. LAMICTAL [Suspect]
     Indication: EPILEPSY
     Dosage: 400MG PER DAY
     Route: 048
     Dates: start: 20110715
  4. FOLIC ACID [Concomitant]
  5. VITAMIN D [Concomitant]
  6. BIRTH CONTROL PILL [Concomitant]

REACTIONS (3)
  - CONVULSION [None]
  - VOMITING [None]
  - PRODUCT QUALITY ISSUE [None]
